FAERS Safety Report 9644540 (Version 1)
Quarter: 2013Q4

REPORT INFORMATION
  Report Type: Spontaneous
  Country: GB (occurrence: GB)
  Receive Date: 20131025
  Receipt Date: 20131025
  Transmission Date: 20140711
  Serious: Yes (Other)
  Sender: FDA-Public Use
  Company Number: GB-AMGEN-GBRSP2013074329

PATIENT
  Sex: Female

DRUGS (1)
  1. XGEVA [Suspect]
     Indication: BREAST CANCER
     Dosage: UNK
     Route: 065

REACTIONS (1)
  - Hypocalcaemia [Unknown]
